FAERS Safety Report 4913565-8 (Version None)
Quarter: 2006Q1

REPORT INFORMATION
  Report Type: 
  Country: None (occurrence: None)
  Receive Date: 20060216
  Receipt Date: 20060210
  Transmission Date: 20060701
  Serious: Yes (Other)
  Sender: FDA-Public Use
  Company Number: 2006AP00682

PATIENT
  Age: 13360 Day
  Sex: Female

DRUGS (7)
  1. SEROQUEL [Suspect]
     Indication: SCHIZOPHRENIA
     Route: 048
     Dates: start: 20050706, end: 20051027
  2. PRIMPERAN TAB [Concomitant]
     Indication: GASTRIC ULCER
     Route: 048
     Dates: start: 20050527, end: 20051115
  3. PRIMPERAN TAB [Concomitant]
     Indication: GASTRITIS
     Route: 048
     Dates: start: 20050527, end: 20051115
  4. GOODMIN [Concomitant]
     Indication: INSOMNIA
     Route: 048
     Dates: start: 20050706, end: 20060112
  5. PARIET [Concomitant]
     Indication: REFLUX OESOPHAGITIS
     Route: 048
     Dates: start: 20050805
  6. TOUGHMAC E [Concomitant]
     Indication: GASTRIC ULCER
     Route: 048
     Dates: start: 20050819
  7. TOUGHMAC E [Concomitant]
     Indication: GASTRITIS
     Route: 048
     Dates: start: 20050819

REACTIONS (2)
  - PARKINSONISM [None]
  - WHITE BLOOD CELL COUNT DECREASED [None]
